FAERS Safety Report 11263564 (Version 1)
Quarter: 2015Q3

REPORT INFORMATION
  Report Type: Spontaneous
  Country: CO (occurrence: CO)
  Receive Date: 20150713
  Receipt Date: 20150713
  Transmission Date: 20151125
  Serious: Yes (Other)
  Sender: FDA-Public Use
  Company Number: CO-ROCHE-1605533

PATIENT
  Sex: Female

DRUGS (2)
  1. XOLAIR [Suspect]
     Active Substance: OMALIZUMAB
     Indication: CHRONIC SPONTANEOUS URTICARIA
     Route: 065
     Dates: start: 20150429
  2. LORATADINE. [Concomitant]
     Active Substance: LORATADINE

REACTIONS (9)
  - Movement disorder [Recovering/Resolving]
  - Somnolence [Recovering/Resolving]
  - Anxiety [Unknown]
  - Urticaria [Recovering/Resolving]
  - Dizziness [Unknown]
  - Presyncope [Recovering/Resolving]
  - Nausea [Unknown]
  - Unresponsive to stimuli [Recovering/Resolving]
  - Limb discomfort [Unknown]

NARRATIVE: CASE EVENT DATE: 20150429
